FAERS Safety Report 12369691 (Version 2)
Quarter: 2016Q2

REPORT INFORMATION
  Report Type: Spontaneous
  Country: US (occurrence: US)
  Receive Date: 20160516
  Receipt Date: 20160516
  Transmission Date: 20160815
  Serious: No
  Sender: FDA-Public Use
  Company Number: PHEH2016US011889

PATIENT
  Sex: Male

DRUGS (2)
  1. LISINOPRIL. [Suspect]
     Active Substance: LISINOPRIL
     Indication: PRODUCT USED FOR UNKNOWN INDICATION
     Route: 065
  2. ENTRESTO [Suspect]
     Active Substance: SACUBITRIL\VALSARTAN
     Indication: PRODUCT USED FOR UNKNOWN INDICATION
     Dosage: HALF A DOSE OF ENTRESTO 24/26 MG
     Route: 065

REACTIONS (5)
  - Angioedema [Unknown]
  - Lip swelling [Unknown]
  - Swelling face [Unknown]
  - Contraindicated drug administered [Unknown]
  - Wrong technique in product usage process [Unknown]
